FAERS Safety Report 14019536 (Version 1)
Quarter: 2017Q3

REPORT INFORMATION
  Report Type: Spontaneous
  Country: US (occurrence: US)
  Receive Date: 20170928
  Receipt Date: 20170928
  Transmission Date: 20171128
  Serious: No
  Sender: FDA-Public Use
  Company Number: US-009507513-1709USA010597

PATIENT
  Age: 31 Year
  Sex: Female
  Weight: 104.99 kg

DRUGS (1)
  1. NUVARING [Suspect]
     Active Substance: ETHINYL ESTRADIOL\ETONOGESTREL
     Indication: CONTRACEPTION
     Dosage: ONE RING, THREE WEEKS IN, ONE WEEK OUT
     Route: 067
     Dates: start: 2007, end: 201709

REACTIONS (6)
  - Pain [Recovered/Resolved]
  - Fungal infection [Recovered/Resolved]
  - Product storage error [Unknown]
  - Pruritus [Recovered/Resolved]
  - Irritability [Recovered/Resolved]
  - Erythema [Recovered/Resolved]

NARRATIVE: CASE EVENT DATE: 20170916
